FAERS Safety Report 6086199-2 (Version None)
Quarter: 2009Q1

REPORT INFORMATION
  Report Type: 
  Country: None (occurrence: None)
  Receive Date: 20090218
  Receipt Date: 20090218
  Transmission Date: 20090719
  Serious: No
  Sender: FDA-Public Use
  Company Number: None

PATIENT
  Age: 49 Year
  Sex: Female
  Weight: 85.7298 kg

DRUGS (1)
  1. DICLOFENAC SODIUM [Suspect]
     Indication: POST PROCEDURAL COMPLICATION
     Dosage: 1 TABLET TWICE DAILY
     Dates: start: 20081211, end: 20081211

REACTIONS (1)
  - HYPOAESTHESIA [None]
